FAERS Safety Report 7356218-1 (Version None)
Quarter: 2011Q1

REPORT INFORMATION
  Report Type: 
  Country: None (occurrence: None)
  Receive Date: 20110316
  Receipt Date: 20100927
  Transmission Date: 20110831
  Serious: Yes (Hospitalization, Other)
  Sender: FDA-Public Use
  Company Number: US-BAYER-200935648NA

PATIENT
  Sex: Female
  Weight: 88.435 kg

DRUGS (5)
  1. YAZ [Suspect]
     Indication: PREMENSTRUAL SYNDROME
  2. METOPROLOL SUCCINATE [Concomitant]
     Dosage: UNK
     Dates: start: 20071001
  3. MIDRIN [Concomitant]
  4. NAPROXEN [Concomitant]
  5. YAZ [Suspect]
     Indication: CONTRACEPTION
     Dosage: RECEIVED 3 SAMPLES FROM OB/GYN IN AUG 2006
     Route: 048
     Dates: start: 20070101, end: 20070701

REACTIONS (5)
  - PULMONARY EMBOLISM [None]
  - THROMBOSIS [None]
  - BLINDNESS [None]
  - MIGRAINE WITH AURA [None]
  - CHOLECYSTECTOMY [None]
